FAERS Safety Report 24943958 (Version 2)
Quarter: 2025Q1

REPORT INFORMATION
  Report Type: Spontaneous
  Country: US (occurrence: US)
  Receive Date: 20250207
  Receipt Date: 20250219
  Transmission Date: 20250409
  Serious: Yes (Other)
  Sender: PFIZER
  Company Number: US-PFIZER INC-202500024542

PATIENT
  Age: 38 Year
  Sex: Female
  Weight: 42.64 kg

DRUGS (3)
  1. VELSIPITY [Suspect]
     Active Substance: ETRASIMOD ARGININE
     Indication: Colitis ulcerative
     Dosage: 2MG; TOOK ONE TABLET ONCE A DAY
     Route: 048
     Dates: start: 20241210, end: 20250124
  2. VELSIPITY [Suspect]
     Active Substance: ETRASIMOD ARGININE
     Indication: Proctitis ulcerative
  3. METHIMAZOLE [Concomitant]
     Active Substance: METHIMAZOLE
     Indication: Hyperthyroidism
     Dosage: 5MG DAILY
     Route: 048
     Dates: start: 202408

REACTIONS (4)
  - Pain [Not Recovered/Not Resolved]
  - White blood cell count decreased [Unknown]
  - Influenza like illness [Unknown]
  - Joint stiffness [Not Recovered/Not Resolved]

NARRATIVE: CASE EVENT DATE: 20250101
